FAERS Safety Report 19192247 (Version 1)
Quarter: 2021Q2

REPORT INFORMATION
  Report Type: Spontaneous
  Country: US (occurrence: US)
  Receive Date: 20210428
  Receipt Date: 20210428
  Transmission Date: 20210717
  Serious: No
  Sender: FDA-Public Use
  Company Number: US-IGSA-BIG0013679

PATIENT
  Age: 15 Year
  Sex: Female

DRUGS (1)
  1. XEMBIFY [Suspect]
     Active Substance: HUMAN IMMUNOGLOBULIN G
     Indication: PRODUCT USED FOR UNKNOWN INDICATION
     Dosage: 15 GRAM
     Route: 058

REACTIONS (3)
  - Pyrexia [Unknown]
  - Injection site discomfort [Unknown]
  - Muscle spasms [Unknown]
